FAERS Safety Report 5620073-8 (Version None)
Quarter: 2008Q1

REPORT INFORMATION
  Report Type: 
  Country: None (occurrence: None)
  Receive Date: 20080208
  Receipt Date: 20080130
  Transmission Date: 20080703
  Serious: Yes (Other)
  Sender: FDA-Public Use
  Company Number: JP-ASTRAZENECA-2008AP00599

PATIENT
  Age: 41 Year
  Sex: Male

DRUGS (9)
  1. SEROQUEL [Suspect]
     Route: 048
  2. SEROQUEL [Suspect]
     Route: 048
  3. AKINETON [Concomitant]
     Route: 048
  4. AMOBAN [Concomitant]
     Route: 048
  5. RISPERDAL [Concomitant]
     Route: 048
  6. DEPAKENE [Concomitant]
     Route: 048
  7. DEPAS [Concomitant]
     Route: 048
  8. PAXIL [Concomitant]
     Route: 048
  9. LEXOTAN [Concomitant]
     Route: 048

REACTIONS (1)
  - INTRACRANIAL VENOUS SINUS THROMBOSIS [None]
